FAERS Safety Report 6283847-9 (Version None)
Quarter: 2009Q3

REPORT INFORMATION
  Report Type: 
  Country: None (occurrence: None)
  Receive Date: 20090723
  Receipt Date: 20090723
  Transmission Date: 20100115
  Serious: Yes (Hospitalization)
  Sender: FDA-Public Use
  Company Number: None

PATIENT
  Sex: Male
  Weight: 89.3 kg

DRUGS (9)
  1. DOXIL [Suspect]
     Dosage: 84 MG
  2. NEULASTA [Suspect]
     Dosage: 6 MG
  3. PREDNISONE [Suspect]
     Dosage: 400 MG
  4. RITUXIMAB (MOAB C2B8 ANTI CD20, CHIMERIC) [Suspect]
     Dosage: 788 MG
  5. VINCRISTINE SULFATE [Suspect]
     Dosage: 2 MG
  6. CYCLOPHOSPHAMIDE [Suspect]
     Dosage: 1575 MG
  7. LISINOPRIL [Concomitant]
  8. NEXIUM [Concomitant]
  9. VERAPAMIL [Concomitant]

REACTIONS (4)
  - HYPERTENSION [None]
  - NAUSEA [None]
  - RESPIRATORY DISTRESS [None]
  - VOMITING [None]
